FAERS Safety Report 5873808-3 (Version None)
Quarter: 2008Q3

REPORT INFORMATION
  Report Type: 
  Country: None (occurrence: None)
  Receive Date: 20080908
  Receipt Date: 20080828
  Transmission Date: 20090109
  Serious: Yes (Hospitalization)
  Sender: FDA-Public Use
  Company Number: US-ROCHE-583521

PATIENT
  Sex: Female

DRUGS (9)
  1. BONIVA [Suspect]
     Indication: OSTEOPOROSIS
     Route: 048
     Dates: start: 20080728
  2. CARDIZEM [Concomitant]
  3. CARDIZEM [Concomitant]
     Dosage: INCREASED
  4. POTASSIUM CHLORIDE [Concomitant]
  5. SYNTHROID [Concomitant]
  6. ZANTAC [Concomitant]
     Dosage: DRUG REPORTED AS: ZANTAC OTC
  7. VITAMIN [Concomitant]
  8. SENOKOT [Concomitant]
     Dosage: DRUG REPORTED AS: SENAKOT
  9. RESTORIL [Concomitant]

REACTIONS (1)
  - ATRIAL FIBRILLATION [None]
